FAERS Safety Report 9311506 (Version 1)
Quarter: 2013Q2

REPORT INFORMATION
  Report Type: Spontaneous
  Country: DE (occurrence: DE)
  Receive Date: 20130528
  Receipt Date: 20130528
  Transmission Date: 20140414
  Serious: Yes (Death, Life-Threatening, Hospitalization)
  Sender: FDA-Public Use
  Company Number: DE-BAXTER-2013BAX018080

PATIENT
  Sex: Female
  Weight: 95 kg

DRUGS (2)
  1. METRONIDAZOL-INFUSIONSL?SUNG 0,5 % BAXTER [Suspect]
     Indication: INTESTINAL ISCHAEMIA
     Route: 042
     Dates: start: 20130424, end: 20130430
  2. CEFUROXIM [Suspect]
     Indication: PRODUCT USED FOR UNKNOWN INDICATION
     Route: 042
     Dates: start: 20130424, end: 20130430

REACTIONS (9)
  - Cardiopulmonary failure [Fatal]
  - Toxic epidermal necrolysis [Unknown]
  - Blood sodium increased [None]
  - Blood potassium increased [None]
  - Blood calcium decreased [None]
  - Blood chloride increased [None]
  - Blood urea increased [None]
  - Blood creatinine increased [None]
  - White blood cell count increased [None]
